FAERS Safety Report 5676346-6 (Version None)
Quarter: 2008Q1

REPORT INFORMATION
  Report Type: 
  Country: None (occurrence: None)
  Receive Date: 20080321
  Receipt Date: 20080311
  Transmission Date: 20080703
  Serious: Yes (Other)
  Sender: FDA-Public Use
  Company Number: US-PFIZER INC-2008023147

PATIENT
  Sex: Female

DRUGS (2)
  1. CHANTIX [Suspect]
  2. ANALGESICS [Concomitant]
     Indication: PAIN

REACTIONS (3)
  - HYPERHIDROSIS [None]
  - IRRITABILITY [None]
  - SURGERY [None]
